FAERS Safety Report 12141834 (Version 1)
Quarter: 2016Q1

REPORT INFORMATION
  Report Type: Spontaneous
  Country: AR (occurrence: AR)
  Receive Date: 20160303
  Receipt Date: 20160303
  Transmission Date: 20160526
  Serious: Yes (Hospitalization)
  Sender: FDA-Public Use
  Company Number: AR-EDISONTHERAPEUTICS-2015-AR-000002

PATIENT
  Age: 29 Year
  Sex: Female

DRUGS (1)
  1. METHERGINE [Suspect]
     Active Substance: METHYLERGONOVINE MALEATE
     Dosage: UNK,

REACTIONS (1)
  - Drug withdrawal maintenance therapy [Recovered/Resolved]

NARRATIVE: CASE EVENT DATE: 20150427
